FAERS Safety Report 7495570-3 (Version None)
Quarter: 2011Q2

REPORT INFORMATION
  Report Type: 
  Country: None (occurrence: None)
  Receive Date: 20110523
  Receipt Date: 20110511
  Transmission Date: 20111010
  Serious: Yes (Other)
  Sender: FDA-Public Use
  Company Number: CN-JNJFOC-20110507112

PATIENT
  Age: 24 Year
  Sex: Male

DRUGS (3)
  1. INVEGA [Suspect]
     Indication: SCHIZOPHRENIA
     Route: 048
     Dates: start: 20110301
  2. INVEGA [Suspect]
     Route: 048
     Dates: start: 20110301
  3. QUETIAPINE [Concomitant]
     Dosage: 200-400MG
     Route: 065

REACTIONS (4)
  - IRRITABILITY [None]
  - DRUG INEFFECTIVE [None]
  - AGGRESSION [None]
  - INTENTIONAL SELF-INJURY [None]
